FAERS Safety Report 18957514 (Version 1)
Quarter: 2021Q1

REPORT INFORMATION
  Report Type: Spontaneous
  Country: US (occurrence: US)
  Receive Date: 20210301
  Receipt Date: 20210301
  Transmission Date: 20210420
  Serious: No
  Sender: FDA-Public Use
  Company Number: None

PATIENT
  Sex: Female

DRUGS (1)
  1. OTEZLA [Suspect]
     Active Substance: APREMILAST
     Indication: PSORIATIC ARTHROPATHY
     Route: 048
     Dates: start: 202011

REACTIONS (6)
  - Abdominal discomfort [None]
  - Palpitations [None]
  - Diarrhoea [None]
  - Anxiety [None]
  - Headache [None]
  - Depression [None]
